FAERS Safety Report 10045415 (Version 2)
Quarter: 2014Q4

REPORT INFORMATION
  Report Type: Other
  Country: CN (occurrence: CN)
  Receive Date: 20140328
  Receipt Date: 20141001
  Transmission Date: 20150528
  Serious: Yes (Other)
  Sender: FDA-Public Use
  Company Number: CN-BRISTOL-MYERS SQUIBB COMPANY-20572962

PATIENT
  Age: 56 Year

DRUGS (4)
  1. 5-FLUOROURACIL [Suspect]
     Active Substance: FLUOROURACIL
     Indication: COLORECTAL CANCER METASTATIC
     Dosage: INTRAVENOUS -2400MG/M2,2 IN 1WEEK(JAN2008-DEC2011)
     Route: 040
     Dates: start: 200801, end: 201112
  2. OXALIPLATIN. [Suspect]
     Active Substance: OXALIPLATIN
     Indication: COLORECTAL CANCER METASTATIC
     Dates: start: 200801, end: 201112
  3. LEUCOVORIN [Suspect]
     Active Substance: LEUCOVORIN
     Indication: COLORECTAL CANCER METASTATIC
     Route: 042
     Dates: start: 200801, end: 201112
  4. ERBITUX [Suspect]
     Active Substance: CETUXIMAB
     Indication: COLORECTAL CANCER METASTATIC
     Dosage: 400MG/M2;JAN08-DEC11?250MG/M2;JAN08-DEC11?500MG/M2;2IN1WEEK(JAN08-DEC11)?DELAYED
     Route: 042
     Dates: start: 200801

REACTIONS (13)
  - Bone marrow failure [Unknown]
  - Paronychia [Recovering/Resolving]
  - Rash [Unknown]
  - Haematotoxicity [Unknown]
  - Constipation [Unknown]
  - Neutropenia [Unknown]
  - Dyspepsia [Unknown]
  - Nausea [Recovering/Resolving]
  - Neurotoxicity [Unknown]
  - Vomiting [Recovering/Resolving]
  - Leukopenia [Unknown]
  - Neuropathy peripheral [Recovering/Resolving]
  - Diarrhoea [Unknown]
